FAERS Safety Report 21245599 (Version 1)
Quarter: 2022Q3

REPORT INFORMATION
  Report Type: Spontaneous
  Country: TW (occurrence: TW)
  Receive Date: 20220824
  Receipt Date: 20220824
  Transmission Date: 20221026
  Serious: Yes (Death, Hospitalization, Other)
  Sender: FDA-Public Use
  Company Number: TW-PFIZER INC-PV202200045715

PATIENT
  Age: 79 Year
  Sex: Female

DRUGS (1)
  1. ENBREL [Suspect]
     Active Substance: ETANERCEPT
     Indication: Rheumatoid arthritis
     Dosage: 25 MG, BIW
     Route: 058
     Dates: start: 20131122, end: 20220810

REACTIONS (1)
  - Sepsis [Fatal]

NARRATIVE: CASE EVENT DATE: 20220816
